FAERS Safety Report 6936828-3 (Version None)
Quarter: 2010Q3

REPORT INFORMATION
  Report Type: 
  Country: None (occurrence: None)
  Receive Date: 20100818
  Receipt Date: 20100804
  Transmission Date: 20110219
  Serious: Yes (Hospitalization, Disabling)
  Sender: FDA-Public Use
  Company Number: A-CH2010-38762

PATIENT
  Age: 76 Year
  Sex: Male
  Weight: 52 kg

DRUGS (16)
  1. TRACLEER [Suspect]
     Indication: PULMONARY ARTERIAL HYPERTENSION
     Dosage: 62.5 MG, BID, ORAL, 31.25 MG, BID, ORAL
     Route: 048
     Dates: start: 20081111, end: 20081117
  2. TRACLEER [Suspect]
     Indication: PULMONARY ARTERIAL HYPERTENSION
     Dosage: 62.5 MG, BID, ORAL, 31.25 MG, BID, ORAL
     Route: 048
     Dates: start: 20081118, end: 20090112
  3. BERAPROST SODIUM (BERAPROST SODIUM) [Concomitant]
  4. WARFARIN POTASSIUM (WARFARIN POTASSIUM) [Concomitant]
  5. LOSARTAN POTASSIUM [Concomitant]
  6. METILDIGOXIN (METILDIGOXIN) [Concomitant]
  7. GLICLAZIDE (GLICLAZIDE) [Concomitant]
  8. PIMOBENDAN (PIMOBENDAN) [Concomitant]
  9. MAGNESIUM OXIDE (MAGNESIUM OXIDE) [Concomitant]
  10. REBAMIPIDE (REBAMIPIDE) [Concomitant]
  11. ACARBOSE [Concomitant]
  12. DIMETICONE (DIMETICONE) [Concomitant]
  13. FUROSEMIDE [Concomitant]
  14. SPIRONOLACTONE [Concomitant]
  15. TRICHLORMETHIAZIDE [Concomitant]
  16. OXYGEN (OXYGEN) [Concomitant]

REACTIONS (5)
  - ACTIVITIES OF DAILY LIVING IMPAIRED [None]
  - BRAIN STEM INFARCTION [None]
  - CHEST PAIN [None]
  - CORONARY ARTERY DISEASE [None]
  - DEPRESSED LEVEL OF CONSCIOUSNESS [None]
